FAERS Safety Report 8140368-6 (Version None)
Quarter: 2012Q1

REPORT INFORMATION
  Report Type: 
  Country: None (occurrence: None)
  Receive Date: 20120216
  Receipt Date: 20120213
  Transmission Date: 20120608
  Serious: No
  Sender: FDA-Public Use
  Company Number: US-PFIZER INC-2012039232

PATIENT
  Sex: Female
  Weight: 59 kg

DRUGS (6)
  1. DETROL LA [Suspect]
     Indication: HYPERTONIC BLADDER
     Dosage: 4 MG, DAILY
     Route: 048
     Dates: start: 20060101
  2. EFFEXOR XR [Suspect]
     Indication: BIPOLAR I DISORDER
     Dosage: 75 MG,DAILY
     Route: 048
  3. EFFEXOR XR [Suspect]
     Indication: BIPOLAR DISORDER
  4. SYNTHROID [Concomitant]
     Indication: HYPERTHYROIDISM
     Dosage: 125 UG, DAILY
     Route: 048
  5. METHYLPHENIDATE [Concomitant]
     Indication: ATTENTION DEFICIT/HYPERACTIVITY DISORDER
     Dosage: ONE FULL 10 MG TABLET AND OTHER BY SPLITTING 10 MG TABLET INTO HALF TWO TIMES A DAY
     Route: 048
  6. LAMICTAL [Concomitant]
     Indication: AFFECTIVE DISORDER
     Dosage: 100 MG, 2X/DAY

REACTIONS (1)
  - LIBIDO DECREASED [None]
